FAERS Safety Report 5909660-7 (Version None)
Quarter: 2008Q4

REPORT INFORMATION
  Report Type: 
  Country: None (occurrence: None)
  Receive Date: 20081007
  Receipt Date: 20080923
  Transmission Date: 20090506
  Serious: Yes (Other)
  Sender: FDA-Public Use
  Company Number: PHHY2008GB22947

PATIENT

DRUGS (1)
  1. EUCREAS [Suspect]
     Route: 048

REACTIONS (1)
  - SKIN ULCER [None]
